FAERS Safety Report 22105583 (Version 2)
Quarter: 2024Q1

REPORT INFORMATION
  Report Type: Report from Study
  Country: CO (occurrence: CO)
  Receive Date: 20230317
  Receipt Date: 20240208
  Transmission Date: 20240410
  Serious: Yes (Disabling, Other)
  Sender: FDA-Public Use
  Company Number: CO-002147023-NVSC2023CO058425

PATIENT
  Sex: Female
  Weight: 56.175 kg

DRUGS (2)
  1. KISQALI [Suspect]
     Active Substance: RIBOCICLIB
     Indication: Breast cancer metastatic
     Dosage: 600 MG, QD
     Route: 048
     Dates: start: 20230201
  2. FEMARA [Suspect]
     Active Substance: LETROZOLE
     Indication: Breast cancer metastatic
     Dosage: 2.5 MG, QD
     Route: 048
     Dates: start: 20230201

REACTIONS (6)
  - Spinal deformity [Unknown]
  - Spinal fracture [Unknown]
  - General physical health deterioration [Unknown]
  - Pain [Recovered/Resolved]
  - Weight increased [Unknown]
  - Product supply issue [Unknown]
